FAERS Safety Report 8621034-7 (Version None)
Quarter: 2012Q3

REPORT INFORMATION
  Report Type: 
  Country: None (occurrence: None)
  Receive Date: 20120824
  Receipt Date: 20120820
  Transmission Date: 20120928
  Serious: Yes (Other)
  Sender: FDA-Public Use
  Company Number: US-PFIZER INC-2012106264

PATIENT
  Age: 36 Year
  Sex: Male
  Weight: 99.773 kg

DRUGS (3)
  1. ROBITUSSIN PEAK COLD MULTI-SYMPTOM COLD [Suspect]
     Indication: NASOPHARYNGITIS
     Dosage: UNK, ONCE A DAY
     Route: 048
     Dates: start: 20120427, end: 20120429
  2. ROBITUSSIN PEAK COLD MULTI-SYMPTOM COLD [Suspect]
     Dosage: UNK
  3. ROBITUSSIN PEAK COLD MULTI-SYMPTOM COLD [Suspect]
     Dosage: UNK
     Route: 048
     Dates: start: 20120101

REACTIONS (5)
  - SWELLING [None]
  - OEDEMA PERIPHERAL [None]
  - MALAISE [None]
  - GENERALISED ERYTHEMA [None]
  - IMPAIRED WORK ABILITY [None]
